FAERS Safety Report 8030733-X (Version None)
Quarter: 2012Q1

REPORT INFORMATION
  Report Type: 
  Country: None (occurrence: None)
  Receive Date: 20120109
  Receipt Date: 20120106
  Transmission Date: 20120608
  Serious: Yes (Death)
  Sender: FDA-Public Use
  Company Number: US-JNJFOC-20111212243

PATIENT
  Age: 33 Year
  Sex: Female

DRUGS (7)
  1. CODEINE [Suspect]
     Indication: SUICIDE ATTEMPT
     Route: 048
  2. REMERON [Suspect]
     Indication: SUICIDE ATTEMPT
     Route: 048
  3. DIPHENHYDRAMINE HCL [Suspect]
     Route: 048
  4. DIPHENHYDRAMINE HCL [Suspect]
     Indication: SUICIDE ATTEMPT
     Route: 048
  5. ACETAMINOPHEN [Suspect]
     Indication: SUICIDE ATTEMPT
     Route: 048
  6. LORAZEPAM [Suspect]
     Indication: SUICIDE ATTEMPT
     Route: 048
  7. ACETAMINOPHEN [Suspect]
     Route: 048

REACTIONS (1)
  - TOXICITY TO VARIOUS AGENTS [None]
